FAERS Safety Report 5321878-3 (Version None)
Quarter: 2007Q2

REPORT INFORMATION
  Report Type: 
  Country: None (occurrence: None)
  Receive Date: 20070510
  Receipt Date: 20070430
  Transmission Date: 20071010
  Serious: Yes (Death, Congenital Anomaly, Other)
  Sender: FDA-Public Use
  Company Number: RU-ABBOTT-07P-251-0366615-00

PATIENT

DRUGS (1)
  1. DEPAKENE [Suspect]
     Indication: DRUG EXPOSURE DURING PREGNANCY
     Route: 064

REACTIONS (7)
  - CONGENITAL CENTRAL NERVOUS SYSTEM ANOMALY [None]
  - CONGENITAL HYDROCEPHALUS [None]
  - HAEMOGLOBIN DECREASED [None]
  - HAEMORRHAGE [None]
  - INTRAVENTRICULAR HAEMORRHAGE NEONATAL [None]
  - NEONATAL ASPHYXIA [None]
  - NEONATAL RESPIRATORY DISTRESS SYNDROME [None]
